FAERS Safety Report 7343893-0 (Version None)
Quarter: 2011Q1

REPORT INFORMATION
  Report Type: 
  Country: None (occurrence: None)
  Receive Date: 20110310
  Receipt Date: 20100113
  Transmission Date: 20110831
  Serious: No
  Sender: FDA-Public Use
  Company Number: A0839170A

PATIENT
  Age: 61 Year
  Sex: Female

DRUGS (1)
  1. NICORETTE [Suspect]
     Dates: start: 20100107, end: 20100112

REACTIONS (6)
  - GINGIVAL PAIN [None]
  - NICOTINE DEPENDENCE [None]
  - ORAL DISCOMFORT [None]
  - HYPOAESTHESIA ORAL [None]
  - ORAL PAIN [None]
  - ORAL MUCOSAL EXFOLIATION [None]
